FAERS Safety Report 16551463 (Version 1)
Quarter: 2019Q3

REPORT INFORMATION
  Report Type: Spontaneous
  Country: US (occurrence: US)
  Receive Date: 20190710
  Receipt Date: 20190710
  Transmission Date: 20191004
  Serious: No
  Sender: FDA-Public Use
  Company Number: US-TEVA-2019-US-1066404

PATIENT
  Sex: Female

DRUGS (2)
  1. CLONAZEPAM ORALLY DISINTEGRATING TABLETS TEVA [Suspect]
     Active Substance: CLONAZEPAM
     Indication: ANXIETY
     Dosage: FORMULATION: ORALLY DISINTEGRATING TABLETS
     Route: 048
  2. CLONAZEPAM ORALLY DISINTEGRATING TABLETS TEVA [Suspect]
     Active Substance: CLONAZEPAM
     Indication: PANIC DISORDER

REACTIONS (4)
  - Nausea [Unknown]
  - Salivary hypersecretion [Unknown]
  - Drug ineffective [Unknown]
  - Product substitution issue [Unknown]
